FAERS Safety Report 22825733 (Version 2)
Quarter: 2023Q4

REPORT INFORMATION
  Report Type: Other
  Country: CN (occurrence: CN)
  Receive Date: 20230816
  Receipt Date: 20231121
  Transmission Date: 20240110
  Serious: Yes (Other)
  Sender: FDA-Public Use
  Company Number: CN-002147023-NVSC2023CN175679

PATIENT

DRUGS (1)
  1. RANIBIZUMAB [Suspect]
     Active Substance: RANIBIZUMAB
     Indication: Glaucoma
     Dosage: 0.05 ML (DRUG INJECTION WAS PERFORMED AT A DISTANCE OF 3.5 MM BEHIND THE UPPER TEMPORAL CORNEAL LIMB
     Route: 047

REACTIONS (1)
  - Hyphaema [Unknown]
